FAERS Safety Report 8388001-2 (Version None)
Quarter: 2012Q2

REPORT INFORMATION
  Report Type: 
  Country: None (occurrence: None)
  Receive Date: 20120525
  Receipt Date: 20120511
  Transmission Date: 20120825
  Serious: Yes (Hospitalization)
  Sender: FDA-Public Use
  Company Number: ES-ARROW GEN-2012-08357

PATIENT
  Age: 7 Year
  Sex: Male

DRUGS (1)
  1. IPRATROPIUM BROMIDE [Suspect]
     Indication: ASTHMA
     Dosage: UNK

REACTIONS (1)
  - PUPILS UNEQUAL [None]
